FAERS Safety Report 7355246-X (Version None)
Quarter: 2011Q1

REPORT INFORMATION
  Report Type: 
  Country: None (occurrence: None)
  Receive Date: 20110316
  Receipt Date: 20110305
  Transmission Date: 20110831
  Serious: Yes (Death)
  Sender: FDA-Public Use
  Company Number: US-BAXTER-2011BH005523

PATIENT
  Age: 87 Year
  Sex: Male

DRUGS (1)
  1. DIANEAL [Suspect]
     Indication: PERITONEAL DIALYSIS
     Route: 033
     Dates: end: 20110305

REACTIONS (3)
  - CARDIAC DISORDER [None]
  - PROSTATE CANCER [None]
  - FAILURE TO THRIVE [None]
